FAERS Safety Report 5228781-8 (Version None)
Quarter: 2007Q1

REPORT INFORMATION
  Report Type: 
  Country: None (occurrence: None)
  Receive Date: 20070131
  Receipt Date: 20070118
  Transmission Date: 20070707
  Serious: Yes (Hospitalization)
  Sender: FDA-Public Use
  Company Number: TCI2007A00126

PATIENT
  Age: 88 Year
  Sex: Female

DRUGS (6)
  1. ACTOS [Suspect]
     Indication: DIABETES MELLITUS NON-INSULIN-DEPENDENT
     Dosage: 15 MG (15 MG, 1 IN 1 D) PER ORAL
     Route: 048
     Dates: start: 20061211, end: 20061227
  2. BASEN OD TABLETS 0.3 (VOGLIBOSE) [Concomitant]
  3. LANSOPRAZOLE [Concomitant]
  4. TAISIROL (ISOSORBIDE MONONITRATE) [Concomitant]
  5. GASMOTIN (MOSAPRIDE CITRATE DEHYDRATE) [Concomitant]
  6. PROMAC (POLAPREZINC) [Concomitant]

REACTIONS (5)
  - PLEURAL EFFUSION [None]
  - PNEUMONIA [None]
  - PULMONARY CONGESTION [None]
  - RESPIRATORY FAILURE [None]
  - VOMITING [None]
